FAERS Safety Report 11038512 (Version 2)
Quarter: 2015Q2

REPORT INFORMATION
  Report Type: Spontaneous
  Country: US (occurrence: US)
  Receive Date: 20150416
  Receipt Date: 20150422
  Transmission Date: 20150821
  Serious: Yes (Disabling, Other)
  Sender: FDA-Public Use
  Company Number: CHPA2015US005026

PATIENT
  Age: 64 Year
  Sex: Female

DRUGS (1)
  1. EXCEDRIN PM [Suspect]
     Active Substance: ACETAMINOPHEN\DIPHENHYDRAMINE\DIPHENHYDRAMINE CITRATE
     Indication: HEADACHE
     Dosage: 1 DF, BID
     Route: 048

REACTIONS (12)
  - Lumbar vertebral fracture [Unknown]
  - Cerebral haemorrhage [Unknown]
  - Accident at work [Unknown]
  - Mood swings [Unknown]
  - Rotator cuff syndrome [Unknown]
  - Migraine [Unknown]
  - Limb crushing injury [Unknown]
  - Poverty of speech [Unknown]
  - Muscle spasms [Unknown]
  - Product use issue [Unknown]
  - Aphasia [Unknown]
  - Inappropriate schedule of drug administration [Unknown]

NARRATIVE: CASE EVENT DATE: 2004
